FAERS Safety Report 4720554-5 (Version None)
Quarter: 2005Q3

REPORT INFORMATION
  Report Type: 
  Country: None (occurrence: None)
  Receive Date: 20050719
  Receipt Date: 20050307
  Transmission Date: 20060218
  Serious: Yes (Hospitalization, Other)
  Sender: FDA-Public Use
  Company Number: 2005043173

PATIENT
  Age: 43 Year
  Sex: Female

DRUGS (3)
  1. CELEBREX [Suspect]
     Indication: INFLAMMATION
     Route: 065
     Dates: start: 20011130, end: 20020628
  2. CELEBREX [Suspect]
     Indication: PAIN
     Route: 065
     Dates: start: 20011130, end: 20020628
  3. LOTREL (AMLODIPINE, BENZAPRIL HYDROCHLORIDE) [Concomitant]

REACTIONS (1)
  - MYOCARDIAL INFARCTION [None]
